FAERS Safety Report 25323595 (Version 1)
Quarter: 2025Q2

REPORT INFORMATION
  Report Type: Spontaneous
  Country: PL (occurrence: PL)
  Receive Date: 20250516
  Receipt Date: 20250516
  Transmission Date: 20250717
  Serious: Yes (Hospitalization, Other)
  Sender: BRISTOL-MYERS SQUIBB COMPANY
  Company Number: PL-BRISTOL-MYERS SQUIBB COMPANY-2025-069402

PATIENT

DRUGS (2)
  1. NIVOLUMAB [Suspect]
     Active Substance: NIVOLUMAB
     Indication: Malignant melanoma
  2. IPILIMUMAB [Suspect]
     Active Substance: IPILIMUMAB
     Indication: Malignant melanoma

REACTIONS (3)
  - Staphylococcal sepsis [Unknown]
  - Vascular access site infection [Unknown]
  - Nephropathy toxic [Unknown]
